FAERS Safety Report 11316713 (Version 1)
Quarter: 2015Q3

REPORT INFORMATION
  Report Type: Spontaneous
  Country: US (occurrence: US)
  Receive Date: 20150728
  Receipt Date: 20150728
  Transmission Date: 20151125
  Serious: No
  Sender: FDA-Public Use
  Company Number: US-PFIZER INC-2015239592

PATIENT
  Sex: Female

DRUGS (3)
  1. ADVIL [Suspect]
     Active Substance: IBUPROFEN
     Indication: BACK PAIN
     Dosage: 3 DF
     Dates: start: 20150714
  2. ADVIL [Suspect]
     Active Substance: IBUPROFEN
     Dosage: 3 DF, 3X/DAY (9 TABLETS)
     Dates: start: 20150715
  3. ADVIL [Suspect]
     Active Substance: IBUPROFEN
     Dosage: 3 DF
     Dates: start: 20150716

REACTIONS (2)
  - Intentional product use issue [Unknown]
  - Drug effect incomplete [Unknown]
